FAERS Safety Report 25903954 (Version 1)
Quarter: 2025Q4

REPORT INFORMATION
  Report Type: Spontaneous
  Country: JP (occurrence: JP)
  Receive Date: 20251010
  Receipt Date: 20251010
  Transmission Date: 20260118
  Serious: Yes (Hospitalization)
  Sender: ROCHE
  Company Number: JP-CHUGAI-2025031949

PATIENT
  Age: 69 Year
  Sex: Male

DRUGS (1)
  1. ACTEMRA [Suspect]
     Active Substance: TOCILIZUMAB
     Indication: Castleman^s disease
     Dosage: 8 MILLIGRAM/KILOGRAM, ONCE/2WEEKS
     Route: 042
     Dates: start: 20250815

REACTIONS (4)
  - Muscle haemorrhage [Unknown]
  - Coagulation factor XIII level decreased [Unknown]
  - Blood fibrinogen decreased [Unknown]
  - Off label use [Unknown]

NARRATIVE: CASE EVENT DATE: 20250901
